FAERS Safety Report 15840005 (Version 2)
Quarter: 2019Q2

REPORT INFORMATION
  Report Type: Spontaneous
  Country: US (occurrence: US)
  Receive Date: 20190117
  Receipt Date: 20190412
  Transmission Date: 20190711
  Serious: No
  Sender: FDA-Public Use
  Company Number: US-PFIZER INC-2019023756

PATIENT
  Age: 47 Year
  Sex: Female

DRUGS (1)
  1. XELJANZ XR [Suspect]
     Active Substance: TOFACITINIB CITRATE
     Indication: RHEUMATOID ARTHRITIS
     Dosage: 11 MG, DAILY
     Route: 048
     Dates: start: 20180928

REACTIONS (7)
  - Sinus disorder [Unknown]
  - Myalgia [Unknown]
  - Blood pressure fluctuation [Unknown]
  - Abdominal discomfort [Unknown]
  - Headache [Unknown]
  - White blood cell count decreased [Unknown]
  - Diarrhoea [Unknown]
